FAERS Safety Report 10593727 (Version 1)
Quarter: 2014Q4

REPORT INFORMATION
  Report Type: Spontaneous
  Country: HR (occurrence: HR)
  Receive Date: 20141119
  Receipt Date: 20141119
  Transmission Date: 20150529
  Serious: Yes (Hospitalization)
  Sender: FDA-Public Use
  Company Number: HR-ELI_LILLY_AND_COMPANY-HR201411004443

PATIENT
  Age: 47 Year
  Sex: Male

DRUGS (1)
  1. ZYPADHERA [Suspect]
     Active Substance: OLANZAPINE PAMOATE
     Indication: PRODUCT USED FOR UNKNOWN INDICATION
     Dosage: 405 MG, MONTHLY (1/M)
     Route: 065
     Dates: start: 20121030

REACTIONS (5)
  - Psychomotor hyperactivity [Unknown]
  - Disorientation [Unknown]
  - Fall [Unknown]
  - Delirium [Unknown]
  - Hypertension [Unknown]

NARRATIVE: CASE EVENT DATE: 20141106
